FAERS Safety Report 24972270 (Version 2)
Quarter: 2025Q2

REPORT INFORMATION
  Report Type: Report from Study
  Country: US (occurrence: US)
  Receive Date: 20250214
  Receipt Date: 20250405
  Transmission Date: 20250716
  Serious: Yes (Hospitalization)
  Sender: ABBVIE
  Company Number: US-ABBVIE-5298386

PATIENT
  Age: 67 Year
  Sex: Male
  Weight: 77.11 kg

DRUGS (20)
  1. UBRELVY [Suspect]
     Active Substance: UBROGEPANT
     Indication: Migraine
     Dosage: FREQUENCY TEXT: 8 TABLETS A MONTH
     Route: 048
     Dates: start: 202308
  2. UBRELVY [Suspect]
     Active Substance: UBROGEPANT
     Indication: Migraine
     Route: 048
     Dates: start: 202503, end: 202503
  3. ATIVAN [Concomitant]
     Active Substance: LORAZEPAM
     Indication: Insomnia
  4. PROTONIX [Concomitant]
     Active Substance: PANTOPRAZOLE SODIUM
     Indication: Gastrointestinal disorder
  5. BENTYL [Concomitant]
     Active Substance: DICYCLOMINE HYDROCHLORIDE
     Indication: Gastrointestinal disorder
  6. SYNTHROID [Concomitant]
     Active Substance: LEVOTHYROXINE SODIUM
     Indication: Hypothyroidism
  7. METOPROLOL [Concomitant]
     Active Substance: METOPROLOL
     Indication: Arterial occlusive disease
  8. FLEXERIL [Concomitant]
     Active Substance: CYCLOBENZAPRINE HYDROCHLORIDE
     Indication: Femoroacetabular impingement
  9. TRAZODONE [Concomitant]
     Active Substance: TRAZODONE HYDROCHLORIDE
     Indication: Bipolar disorder
  10. NORVASC [Concomitant]
     Active Substance: AMLODIPINE BESYLATE
     Indication: Atrial appendage closure
  11. MAGNESIUM CITRATE [Concomitant]
     Active Substance: MAGNESIUM CITRATE
     Indication: Gastrointestinal disorder
  12. Dulcolax [Concomitant]
     Indication: Gastrointestinal disorder
  13. BENADRYL [Concomitant]
     Active Substance: DIPHENHYDRAMINE HYDROCHLORIDE
     Indication: Migraine
  14. CRESTOR [Concomitant]
     Active Substance: ROSUVASTATIN CALCIUM
     Indication: Arterial occlusive disease
  15. MEMANTINE [Concomitant]
     Active Substance: MEMANTINE
     Indication: Migraine
  16. AMBIEN [Concomitant]
     Active Substance: ZOLPIDEM TARTRATE
     Indication: Bipolar disorder
  17. SEROQUEL [Concomitant]
     Active Substance: QUETIAPINE FUMARATE
     Indication: Bipolar disorder
  18. AMITIZA [Concomitant]
     Active Substance: LUBIPROSTONE
     Indication: Gastrointestinal disorder
  19. COLACE [Concomitant]
     Active Substance: DOCUSATE SODIUM
     Indication: Gastrointestinal disorder
  20. ZOFRAN [Concomitant]
     Active Substance: ONDANSETRON HYDROCHLORIDE
     Indication: Nausea

REACTIONS (7)
  - Migraine [Unknown]
  - Fluid intake reduced [Recovered/Resolved]
  - Hospitalisation [Unknown]
  - Blood creatinine increased [Recovered/Resolved]
  - Blood potassium decreased [Recovered/Resolved]
  - Dehydration [Recovered/Resolved]
  - Feeding disorder [Recovered/Resolved]

NARRATIVE: CASE EVENT DATE: 20240701
